FAERS Safety Report 9530003 (Version 1)
Quarter: 2013Q3

REPORT INFORMATION
  Report Type: Spontaneous
  Country: GB (occurrence: GB)
  Receive Date: 20130917
  Receipt Date: 20130917
  Transmission Date: 20140515
  Serious: Yes (Other)
  Sender: FDA-Public Use
  Company Number: GB-TEVA-431088ISR

PATIENT
  Age: 67 Year
  Sex: Male

DRUGS (3)
  1. FLUTICASONE [Suspect]
     Indication: CHRONIC OBSTRUCTIVE PULMONARY DISEASE
     Route: 055
  2. VILANTEROL TRIFENATATE [Suspect]
     Indication: CHRONIC OBSTRUCTIVE PULMONARY DISEASE
     Route: 055
  3. LAMOTRIGINE [Concomitant]

REACTIONS (4)
  - Petit mal epilepsy [Unknown]
  - Dizziness [Unknown]
  - Agitation [Unknown]
  - Epilepsy [Unknown]
